FAERS Safety Report 7327640-4 (Version None)
Quarter: 2011Q1

REPORT INFORMATION
  Report Type: 
  Country: None (occurrence: None)
  Receive Date: 20110303
  Receipt Date: 20100907
  Transmission Date: 20110831
  Serious: Yes (Hospitalization, Other)
  Sender: FDA-Public Use
  Company Number: US-BAYER-201014476NA

PATIENT
  Sex: Female
  Weight: 61.364 kg

DRUGS (6)
  1. TRAZODONE [Concomitant]
     Indication: ANXIETY
     Dates: start: 20070101
  2. VICODIN [Concomitant]
  3. YASMIN [Suspect]
     Indication: PREMENSTRUAL SYNDROME
     Route: 048
     Dates: start: 20040101, end: 20080226
  4. ZOLOFT [Concomitant]
     Indication: DEPRESSION
  5. ZOLOFT [Concomitant]
     Indication: DYSMENORRHOEA
     Dates: start: 20070101, end: 20080101
  6. YASMIN [Suspect]
     Indication: CONTRACEPTION

REACTIONS (7)
  - HAEMATEMESIS [None]
  - PULMONARY EMBOLISM [None]
  - CHILLS [None]
  - PRESYNCOPE [None]
  - ATELECTASIS [None]
  - MUSCULOSKELETAL PAIN [None]
  - PULMONARY INFARCTION [None]
